FAERS Safety Report 4734208-2 (Version None)
Quarter: 2005Q3

REPORT INFORMATION
  Report Type: 
  Country: None (occurrence: None)
  Receive Date: 20050804
  Receipt Date: 20040514
  Transmission Date: 20060218
  Serious: Yes (Hospitalization)
  Sender: FDA-Public Use
  Company Number: JP-2004-025357

PATIENT
  Age: 50 Year
  Sex: Female

DRUGS (2)
  1. QUADRAMET [Suspect]
     Indication: BREAST CANCER RECURRENT
     Dosage: 2170 MBQ, 1X/DAY, INTRAVENOUS
     Route: 042
     Dates: start: 20040330, end: 20040330
  2. QUADRAMET [Suspect]
     Indication: METASTASES TO BONE
     Dosage: 2170 MBQ, 1X/DAY, INTRAVENOUS
     Route: 042
     Dates: start: 20040330, end: 20040330

REACTIONS (4)
  - ARTHRALGIA [None]
  - DYSSTASIA [None]
  - PAIN [None]
  - PAIN IN EXTREMITY [None]
